FAERS Safety Report 21552584 (Version 3)
Quarter: 2022Q4

REPORT INFORMATION
  Report Type: Report from Study
  Country: KR (occurrence: KR)
  Receive Date: 20221104
  Receipt Date: 20221111
  Transmission Date: 20230113
  Serious: Yes (Hospitalization, Other)
  Sender: FDA-Public Use
  Company Number: KR-ABBVIE-4187062

PATIENT
  Age: 51 Year
  Sex: Male
  Weight: 70 kg

DRUGS (15)
  1. RINVOQ [Suspect]
     Active Substance: UPADACITINIB
     Indication: Rheumatoid arthritis
     Route: 048
     Dates: start: 20220517, end: 20220930
  2. ISONIAZID [Concomitant]
     Active Substance: ISONIAZID
     Indication: Antibiotic prophylaxis
     Dosage: 100MG
     Route: 048
     Dates: start: 20211214, end: 20220913
  3. METHYLPREDNISOLONE [Concomitant]
     Active Substance: METHYLPREDNISOLONE
     Indication: Rheumatoid arthritis
     Route: 048
     Dates: start: 20221101
  4. METHYLPREDNISOLONE [Concomitant]
     Active Substance: METHYLPREDNISOLONE
     Indication: Rheumatoid arthritis
     Route: 048
     Dates: start: 20220224, end: 20220930
  5. PYRIDOXINE SINIL [Concomitant]
     Indication: Vitamin supplementation
     Route: 048
     Dates: start: 20211214, end: 20220913
  6. METHYLPREDNISOLONE [Concomitant]
     Active Substance: METHYLPREDNISOLONE
     Indication: Rheumatoid arthritis
     Dosage: STEROIDS
     Route: 065
     Dates: start: 20210722, end: 20220223
  7. METHYLPREDNISOLONE [Concomitant]
     Active Substance: METHYLPREDNISOLONE
     Indication: Rheumatoid arthritis
     Dosage: STEROIDS
     Route: 065
     Dates: start: 20220224
  8. ACETAMINOPHEN\TRAMADOL [Concomitant]
     Active Substance: ACETAMINOPHEN\TRAMADOL
     Indication: Rheumatoid arthritis
     Dosage: SEMI
     Route: 048
     Dates: start: 20220614
  9. RHEUMATREX [Concomitant]
     Active Substance: METHOTREXATE SODIUM
     Indication: Rheumatoid arthritis
     Dosage: CSDMARDS-METHOTREXATE (RHEUMATREX. FOLEX)
     Dates: start: 20210722
  10. K CAB [Concomitant]
     Indication: Prophylaxis against gastrointestinal ulcer
     Route: 048
     Dates: start: 20220224
  11. CELEBREX [Concomitant]
     Active Substance: CELECOXIB
     Indication: Rheumatoid arthritis
     Dosage: NSAID
     Route: 048
     Dates: start: 20211214, end: 20220930
  12. CELEBREX [Concomitant]
     Active Substance: CELECOXIB
     Indication: Rheumatoid arthritis
     Route: 065
     Dates: start: 20211214
  13. SINIL [Concomitant]
     Indication: Prophylaxis
     Dosage: FOLIC ACID
     Route: 048
     Dates: start: 20210722
  14. Yuhan methotrexate [Concomitant]
     Indication: Rheumatoid arthritis
     Dosage: 2.5 MG
     Route: 048
     Dates: start: 20221101
  15. Yuhan methotrexate [Concomitant]
     Indication: Rheumatoid arthritis
     Dosage: 2.5 MG
     Route: 048
     Dates: start: 20210722, end: 20220930

REACTIONS (1)
  - Gastric cancer [Recovering/Resolving]

NARRATIVE: CASE EVENT DATE: 20221001
